FAERS Safety Report 11157073 (Version 1)
Quarter: 2015Q2

REPORT INFORMATION
  Report Type: Spontaneous
  Country: PL (occurrence: PL)
  Receive Date: 20150602
  Receipt Date: 20150602
  Transmission Date: 20150821
  Serious: Yes (Other)
  Sender: FDA-Public Use
  Company Number: PL-TEVA-566794ISR

PATIENT
  Sex: Male

DRUGS (1)
  1. OKSALIPLATYNA [Suspect]
     Active Substance: OXALIPLATIN
     Dosage: FOLFOX REGIMEN
     Route: 041
     Dates: start: 20140628, end: 20140628

REACTIONS (7)
  - Dyspnoea [Recovered/Resolved]
  - Urticaria [Recovered/Resolved]
  - Erythema [Recovered/Resolved]
  - Vomiting [Recovered/Resolved]
  - Tachypnoea [Recovered/Resolved]
  - Hypoaesthesia [Recovered/Resolved]
  - Nausea [Recovered/Resolved]

NARRATIVE: CASE EVENT DATE: 20140628
